FAERS Safety Report 16286262 (Version 2)
Quarter: 2019Q3

REPORT INFORMATION
  Report Type: Spontaneous
  Country: US (occurrence: US)
  Receive Date: 20190508
  Receipt Date: 20190808
  Transmission Date: 20191004
  Serious: No
  Sender: FDA-Public Use
  Company Number: US-PFIZER INC-2019191474

PATIENT
  Age: 67 Year
  Sex: Female
  Weight: 77 kg

DRUGS (8)
  1. LYRICA [Suspect]
     Active Substance: PREGABALIN
     Dosage: 75 MG, 3X/DAY
  2. TYLENOL [Concomitant]
     Active Substance: ACETAMINOPHEN
     Dosage: UNK
     Dates: start: 20190320
  3. FOLIC ACID. [Concomitant]
     Active Substance: FOLIC ACID
     Dosage: UNK
     Dates: start: 20190320
  4. THIAMINE. [Concomitant]
     Active Substance: THIAMINE
     Dosage: 100 MG, UNK
     Dates: start: 20190320
  5. ATORVASTATIN [Concomitant]
     Active Substance: ATORVASTATIN
     Dosage: 40 MG, UNK
     Dates: start: 20190320
  6. LOSARTAN. [Concomitant]
     Active Substance: LOSARTAN
     Dosage: UNK (LOSARTAN: 100MG - 25MG)
     Dates: start: 20190320
  7. LYRICA [Suspect]
     Active Substance: PREGABALIN
     Indication: PAIN IN EXTREMITY
     Dosage: 25 MG CAPSULES BY MOUTH THREE TIMES DAILY
     Route: 048
  8. LYRICA [Suspect]
     Active Substance: PREGABALIN
     Dosage: 75 MG, 3X/DAY

REACTIONS (1)
  - Drug ineffective [Not Recovered/Not Resolved]
